FAERS Safety Report 5483650-3 (Version None)
Quarter: 2007Q4

REPORT INFORMATION
  Report Type: 
  Country: None (occurrence: None)
  Receive Date: 20071009
  Receipt Date: 20071009
  Transmission Date: 20080405
  Serious: Yes (Hospitalization)
  Sender: FDA-Public Use
  Company Number: None

PATIENT
  Sex: Male
  Weight: 15.3 kg

DRUGS (3)
  1. DEXAMETHASONE [Suspect]
     Dosage: 136.5 MG
  2. METHOTREXATE [Suspect]
     Dosage: 12 MG
  3. VINCRISTINE SULFATE [Suspect]
     Dosage: 3 MG

REACTIONS (6)
  - AGITATION [None]
  - BRAIN STEM ISCHAEMIA [None]
  - CEREBRAL ISCHAEMIA [None]
  - ELECTROENCEPHALOGRAM ABNORMAL [None]
  - MOTOR DYSFUNCTION [None]
  - RESPIRATORY DISORDER [None]
